FAERS Safety Report 9924712 (Version 2)
Quarter: 2014Q2

REPORT INFORMATION
  Report Type: Report from Study
  Country: DE (occurrence: DE)
  Receive Date: 20140226
  Receipt Date: 20140630
  Transmission Date: 20141212
  Serious: Yes (Hospitalization)
  Sender: FDA-Public Use
  Company Number: DE-JNJFOC-20140206857

PATIENT
  Age: 65 Year
  Sex: Male
  Weight: 88 kg

DRUGS (16)
  1. ZYTIGA [Suspect]
     Indication: PROSTATE CANCER METASTATIC
     Route: 048
     Dates: start: 20140108
  2. PREDNISOLONE [Concomitant]
     Route: 065
     Dates: start: 20140108
  3. NOVAMINSULFON [Concomitant]
     Indication: BONE PAIN
     Route: 065
     Dates: start: 20140204
  4. NOVAMINSULFON [Concomitant]
     Indication: BONE PAIN
     Route: 065
     Dates: start: 20140305
  5. NOVAMINSULFON [Concomitant]
     Indication: PROCEDURAL PAIN
     Route: 065
     Dates: start: 20140204
  6. NOVAMINSULFON [Concomitant]
     Indication: PROCEDURAL PAIN
     Route: 065
     Dates: start: 20140305
  7. AMLODIPINE [Concomitant]
     Indication: HYPERTENSION
     Route: 065
     Dates: start: 20140101
  8. TRAMADOLOR [Concomitant]
     Indication: PAIN
     Route: 065
     Dates: start: 20140106, end: 20140107
  9. TRAMADOLOR [Concomitant]
     Indication: PAIN
     Route: 065
     Dates: start: 20140108, end: 20140115
  10. MCP [Concomitant]
     Indication: NAUSEA
     Route: 065
     Dates: start: 20140116
  11. VALORON [Concomitant]
     Indication: PAIN
     Route: 065
     Dates: start: 20140116, end: 20140122
  12. HISTRELIN [Concomitant]
     Indication: PROSTATE CANCER
     Route: 065
     Dates: start: 20120726
  13. DENOSUMAB [Concomitant]
     Indication: METASTASES TO BONE
     Route: 065
     Dates: start: 20140508
  14. CALCIUM [Concomitant]
     Route: 065
     Dates: start: 20140508
  15. VITAMIN D3 [Concomitant]
     Route: 065
     Dates: start: 20140508
  16. DICLOFENAC [Concomitant]
     Indication: BACK PAIN
     Route: 065
     Dates: start: 20140508

REACTIONS (3)
  - Bronchitis [Recovered/Resolved]
  - Pain [Recovered/Resolved with Sequelae]
  - Hypokalaemia [Recovered/Resolved]
